FAERS Safety Report 6987459-0 (Version None)
Quarter: 2010Q3

REPORT INFORMATION
  Report Type: 
  Country: None (occurrence: None)
  Receive Date: 20100916
  Receipt Date: 20100907
  Transmission Date: 20110219
  Serious: Yes (Hospitalization)
  Sender: FDA-Public Use
  Company Number: PHHY2010MX59791

PATIENT
  Sex: Female

DRUGS (1)
  1. DIOVAN HCT [Suspect]
     Dosage: TABLETS OF 160/12.5 MG  PER DAY
     Dates: start: 20081101

REACTIONS (3)
  - COUGH [None]
  - NEOPLASM [None]
  - SURGERY [None]
